FAERS Safety Report 14066543 (Version 1)
Quarter: 2017Q4

REPORT INFORMATION
  Report Type: Spontaneous
  Country: US (occurrence: US)
  Receive Date: 20171010
  Receipt Date: 20171010
  Transmission Date: 20180321
  Serious: No
  Sender: FDA-Public Use
  Company Number: US-WEST-WARD PHARMACEUTICALS CORP.-US-H14001-17-02443

PATIENT
  Sex: Female

DRUGS (1)
  1. MITIGARE [Suspect]
     Active Substance: COLCHICINE
     Indication: GOUT
     Route: 065

REACTIONS (1)
  - Gout [Unknown]
